FAERS Safety Report 9929346 (Version 1)
Quarter: 2014Q1

REPORT INFORMATION
  Report Type: Report from Study
  Country: US (occurrence: US)
  Receive Date: 20140227
  Receipt Date: 20140227
  Transmission Date: 20141002
  Serious: Yes (Hospitalization)
  Sender: FDA-Public Use
  Company Number: US-BAYER-2014-029894

PATIENT
  Age: 59 Year
  Sex: Female

DRUGS (3)
  1. BETASERON [Suspect]
     Indication: MULTIPLE SCLEROSIS
     Dosage: 8 MIU, QOD
     Route: 058
     Dates: start: 20130527
  2. BACLOFEN [Suspect]
     Indication: MUSCLE SPASMS
     Dosage: UNK UNK, TID
  3. LASIX [Concomitant]
     Indication: CARDIAC FAILURE CONGESTIVE
     Route: 048

REACTIONS (6)
  - Cardiac failure congestive [Recovering/Resolving]
  - Muscle spasms [Recovering/Resolving]
  - Fluid retention [Recovering/Resolving]
  - Local swelling [Recovering/Resolving]
  - Insomnia [Recovered/Resolved]
  - Somnolence [Recovered/Resolved]
